FAERS Safety Report 4290359-0 (Version None)
Quarter: 2004Q1

REPORT INFORMATION
  Report Type: 
  Country: None (occurrence: None)
  Receive Date: 20040210
  Receipt Date: 20030501
  Transmission Date: 20041129
  Serious: Yes (Hospitalization, Other)
  Sender: FDA-Public Use
  Company Number: US-BRISTOL-MYERS SQUIBB COMPANY-12271391

PATIENT
  Sex: Female

DRUGS (9)
  1. STADOL [Suspect]
     Indication: MIGRAINE
     Dates: start: 19970101
  2. VALIUM [Concomitant]
     Dosage: DOSING:30-50 MG A DAY
  3. DEMEROL [Concomitant]
  4. FLEXERIL [Concomitant]
     Indication: BACK PAIN
  5. ZOLOFT [Concomitant]
  6. PRILOSEC [Concomitant]
     Route: 048
  7. PROPULSID [Concomitant]
  8. HYDROCODONE [Concomitant]
  9. VIOXX [Concomitant]

REACTIONS (3)
  - DEPENDENCE [None]
  - DRUG WITHDRAWAL SYNDROME [None]
  - SUICIDAL IDEATION [None]
